FAERS Safety Report 8307728-1 (Version None)
Quarter: 2012Q2

REPORT INFORMATION
  Report Type: 
  Country: None (occurrence: None)
  Receive Date: 20120424
  Receipt Date: 20120419
  Transmission Date: 20120825
  Serious: Yes (Hospitalization)
  Sender: FDA-Public Use
  Company Number: PHEH2012US008476

PATIENT
  Sex: Female

DRUGS (1)
  1. RECLAST [Suspect]
     Dosage: UNK UKN, UNK
     Route: 042
     Dates: start: 20120409

REACTIONS (5)
  - SPINAL FRACTURE [None]
  - HYPOKINESIA [None]
  - PAIN [None]
  - DYSPNOEA [None]
  - MUSCLE SPASMS [None]
